FAERS Safety Report 5563511-1 (Version None)
Quarter: 2007Q4

REPORT INFORMATION
  Report Type: 
  Country: None (occurrence: None)
  Receive Date: 20071217
  Receipt Date: 20070611
  Transmission Date: 20080405
  Serious: No
  Sender: FDA-Public Use
  Company Number: US-ASTRAZENECA-2007UW13929

PATIENT
  Age: 19093 Day
  Sex: Female
  Weight: 61.2 kg

DRUGS (2)
  1. CRESTOR [Suspect]
     Indication: BLOOD CHOLESTEROL INCREASED
     Route: 048
     Dates: start: 20070531
  2. NORVASC [Concomitant]

REACTIONS (4)
  - HEADACHE [None]
  - PAIN IN EXTREMITY [None]
  - PRURITUS [None]
  - RASH [None]
